FAERS Safety Report 9581006 (Version 2)
Quarter: 2013Q4

REPORT INFORMATION
  Report Type: Spontaneous
  Country: US (occurrence: US)
  Receive Date: 20131002
  Receipt Date: 20131017
  Transmission Date: 20140711
  Serious: Yes (Other)
  Sender: FDA-Public Use
  Company Number: US-FRI-1000049212

PATIENT
  Age: 44 Year
  Sex: Female
  Weight: 52.1 kg

DRUGS (11)
  1. CELEXA [Suspect]
     Indication: ANXIETY
     Dosage: 40 MG
     Route: 048
     Dates: start: 2011, end: 20130917
  2. CELEXA [Suspect]
     Dosage: 20 MG
     Route: 048
     Dates: start: 20130918, end: 20130920
  3. CELEXA [Suspect]
     Dosage: 10 MG
     Route: 048
     Dates: start: 20130921, end: 20130923
  4. TAGAMET [Suspect]
     Indication: ABDOMINAL PAIN UPPER
     Dates: start: 201309, end: 201309
  5. ALESSE [Concomitant]
     Indication: CONTRACEPTION
     Dosage: 1 TABLET DAILY
     Route: 048
  6. ACETAMINOPHEN [Concomitant]
     Indication: PAIN
     Dosage: 1 TABLET EVERY 4-6 HOURS AS NEEDED
     Route: 048
  7. BENTYL [Concomitant]
     Dosage: 20 MG
     Route: 048
  8. SOMA [Concomitant]
     Dosage: 1 TABLET FOUR TIMES DAILY AS NEEDED
     Route: 048
  9. VICODIN [Concomitant]
     Dosage: 5/500 MG 1 TABLET EVERY FOUR HOURS AS NEEDED
     Route: 048
  10. FERROUS GLUCONATE [Concomitant]
     Indication: ANAEMIA
     Dosage: 324 MG
     Route: 048
  11. PRENATAL VITAMIN WITH IRON [Concomitant]
     Indication: ANAEMIA

REACTIONS (26)
  - Fall [Recovered/Resolved]
  - Craniocerebral injury [Recovered/Resolved]
  - Anaemia [Recovered/Resolved]
  - Suicidal ideation [Recovered/Resolved]
  - Serotonin syndrome [Recovered/Resolved]
  - Swelling [Recovered/Resolved]
  - Weight increased [Recovered/Resolved]
  - Mental status changes [Unknown]
  - Abdominal pain upper [Recovered/Resolved]
  - Off label use [Recovered/Resolved]
  - Neck pain [Unknown]
  - Musculoskeletal pain [Unknown]
  - Back pain [Unknown]
  - Contusion [Unknown]
  - Oral herpes [Unknown]
  - Oropharyngeal pain [Unknown]
  - Aphonia [Unknown]
  - Fatigue [Unknown]
  - Hypersomnia [Unknown]
  - Dysphonia [Unknown]
  - Blood prolactin increased [Unknown]
  - Depression [Recovered/Resolved]
  - Crying [Recovered/Resolved]
  - Affect lability [Recovered/Resolved]
  - Memory impairment [Unknown]
  - Dizziness [Unknown]
